FAERS Safety Report 4722288-X (Version None)
Quarter: 2005Q3

REPORT INFORMATION
  Report Type: 
  Country: None (occurrence: None)
  Receive Date: 20050722
  Receipt Date: 20041011
  Transmission Date: 20060218
  Serious: No
  Sender: FDA-Public Use
  Company Number: US-GLAXOSMITHKLINE-A0529326A

PATIENT
  Age: 77 Year
  Sex: Male

DRUGS (6)
  1. AVANDIA [Suspect]
     Dosage: 4MG PER DAY
     Route: 048
  2. TYLOX [Concomitant]
  3. XANAX [Concomitant]
  4. VIOXX [Concomitant]
  5. TOPROL-XL [Concomitant]
  6. UNKNOWN MEDICATION [Concomitant]

REACTIONS (3)
  - BLOOD GLUCOSE INCREASED [None]
  - DRUG INEFFECTIVE [None]
  - PHARMACEUTICAL PRODUCT COMPLAINT [None]
